FAERS Safety Report 7430774-7 (Version None)
Quarter: 2011Q2

REPORT INFORMATION
  Report Type: 
  Country: None (occurrence: None)
  Receive Date: 20110421
  Receipt Date: 20110408
  Transmission Date: 20111010
  Serious: Yes (Hospitalization)
  Sender: FDA-Public Use
  Company Number: ES-JNJFOC-20110200995

PATIENT
  Sex: Female
  Weight: 52.4 kg

DRUGS (8)
  1. REMICADE [Suspect]
     Route: 042
  2. AZATHIOPRINE [Concomitant]
     Indication: COLITIS ULCERATIVE
     Route: 048
  3. COTRIM [Concomitant]
     Indication: PROPHYLAXIS
     Route: 048
  4. OMEPRAZOLE [Concomitant]
     Indication: GASTROINTESTINAL DISORDER THERAPY
     Route: 048
  5. CALCIUM WITH VITAMIN D [Concomitant]
     Indication: PROPHYLAXIS
     Route: 048
  6. PREDNISONE [Concomitant]
     Indication: COLITIS ULCERATIVE
     Dosage: TAPERING DOSE
     Route: 048
  7. ALPRAZOLAM [Concomitant]
     Indication: ANXIETY
     Route: 048
  8. REMICADE [Suspect]
     Indication: COLITIS ULCERATIVE
     Route: 042

REACTIONS (5)
  - THROMBOPHLEBITIS SEPTIC [None]
  - SEPTIC SHOCK [None]
  - JUGULAR VEIN THROMBOSIS [None]
  - COLITIS ULCERATIVE [None]
  - ESCHERICHIA INFECTION [None]
